FAERS Safety Report 21551148 (Version 1)
Quarter: 2022Q4

REPORT INFORMATION
  Report Type: Spontaneous
  Country: US (occurrence: None)
  Receive Date: 20221103
  Receipt Date: 20221103
  Transmission Date: 20230112
  Serious: Yes (Death)
  Sender: FDA-Public Use
  Company Number: None

PATIENT
  Age: 67 Year
  Sex: Male
  Weight: 64.6 kg

DRUGS (1)
  1. TAXOTERE [Suspect]
     Active Substance: DOCETAXEL
     Dates: end: 20220901

REACTIONS (27)
  - Dizziness postural [None]
  - Asthenia [None]
  - Hypophagia [None]
  - Fatigue [None]
  - Decreased appetite [None]
  - Nausea [None]
  - Constipation [None]
  - Tachycardia [None]
  - Anaemia [None]
  - Neutropenia [None]
  - Hypokalaemia [None]
  - Mental status changes [None]
  - Unresponsive to stimuli [None]
  - Arteriosclerosis [None]
  - Confusional state [None]
  - Disturbance in attention [None]
  - Embolic stroke [None]
  - Hydrocephalus [None]
  - Seizure [None]
  - Pupillary disorder [None]
  - Respiratory failure [None]
  - Cerebrovascular stenosis [None]
  - Autopsy [None]
  - Metastases to meninges [None]
  - Metastases to meninges [None]
  - Pleural effusion [None]
  - Arteriosclerosis coronary artery [None]

NARRATIVE: CASE EVENT DATE: 20220910
